FAERS Safety Report 5510943-3 (Version None)
Quarter: 2007Q4

REPORT INFORMATION
  Report Type: 
  Country: None (occurrence: None)
  Receive Date: 20071030
  Receipt Date: 20070305
  Transmission Date: 20080405
  Serious: Yes (Hospitalization)
  Sender: FDA-Public Use
  Company Number: HQWYE832106MAR07

PATIENT
  Age: 65 Year
  Sex: Female

DRUGS (6)
  1. PREMARIN [Suspect]
     Indication: MENOPAUSAL SYMPTOMS
     Dosage: 0.625 MG 1X PER 1 DAY, ORAL
     Route: 048
     Dates: start: 19970101
  2. GLUCOSAMINE (GLUCOSAMINE) [Concomitant]
  3. NAPROXEN [Concomitant]
  4. LEXAPRO [Concomitant]
  5. PROVERA [Concomitant]
  6. NORTRIPTYLINE HCL [Concomitant]

REACTIONS (1)
  - DEEP VEIN THROMBOSIS [None]
